FAERS Safety Report 19318688 (Version 1)
Quarter: 2021Q2

REPORT INFORMATION
  Report Type: Report from Study
  Country: US (occurrence: US)
  Receive Date: 20210527
  Receipt Date: 20210527
  Transmission Date: 20210717
  Serious: Yes (Hospitalization)
  Sender: FDA-Public Use
  Company Number: US-TAKEDA-2021TUS033423

PATIENT
  Sex: Male

DRUGS (1)
  1. IDURSULFASE [Suspect]
     Active Substance: IDURSULFASE
     Indication: FABRY^S DISEASE
     Dosage: 0.67 MILLIGRAM/KILOGRAM, 1/WEEK
     Route: 042
     Dates: start: 20191108

REACTIONS (1)
  - Surgery [Unknown]
